FAERS Safety Report 9473469 (Version 2)
Quarter: 2013Q3

REPORT INFORMATION
  Report Type: Spontaneous
  Country: US (occurrence: US)
  Receive Date: 20130823
  Receipt Date: 20130823
  Transmission Date: 20140515
  Serious: Yes (Other)
  Sender: FDA-Public Use
  Company Number: US-BRISTOL-MYERS SQUIBB COMPANY-19014703

PATIENT
  Age: 42 Year
  Sex: Female
  Weight: 58.96 kg

DRUGS (6)
  1. SPRYCEL [Suspect]
     Indication: CHRONIC LYMPHOCYTIC LEUKAEMIA
     Dosage: SPRYCEL TABS 50 MG 3 TIMES  A DAY
     Route: 048
     Dates: start: 201305, end: 2013
  2. CYCLOSPORINE [Concomitant]
  3. VALTREX [Concomitant]
  4. PREDNISONE [Concomitant]
  5. ALLOPURINOL [Concomitant]
  6. BACTRIM [Concomitant]

REACTIONS (2)
  - Malignant neoplasm progression [Unknown]
  - Platelet count decreased [Unknown]
